FAERS Safety Report 9016361 (Version 2)
Quarter: 2017Q1

REPORT INFORMATION
  Report Type: Report from Study
  Country: US (occurrence: US)
  Receive Date: 20130116
  Receipt Date: 20170316
  Transmission Date: 20170429
  Serious: Yes (Hospitalization, Other)
  Sender: FDA-Public Use
  Company Number: US-ROCHE-1179088

PATIENT
  Age: 40 Year
  Sex: Female
  Weight: 79.9 kg

DRUGS (7)
  1. NEURONTIN [Concomitant]
     Active Substance: GABAPENTIN
  2. RENVELA [Concomitant]
     Active Substance: SEVELAMER CARBONATE
  3. CARDIZEM [Concomitant]
     Active Substance: DILTIAZEM HYDROCHLORIDE
  4. LOVASTATIN. [Concomitant]
     Active Substance: LOVASTATIN
  5. ZOLOFT [Concomitant]
     Active Substance: SERTRALINE HYDROCHLORIDE
  6. TOCILIZUMAB [Suspect]
     Active Substance: TOCILIZUMAB
     Indication: RENAL TRANSPLANT
     Dosage: STRENGTH 20MG/ML
     Route: 042
     Dates: start: 20120810
  7. SENSIPAR [Concomitant]
     Active Substance: CINACALCET HYDROCHLORIDE

REACTIONS (8)
  - Pyrexia [Unknown]
  - Fluid overload [Unknown]
  - Pneumonia [Recovered/Resolved]
  - Myalgia [Unknown]
  - Asthenia [Unknown]
  - Pulmonary vascular disorder [Unknown]
  - Cardiac arrest [Unknown]
  - Myocardial infarction [Unknown]

NARRATIVE: CASE EVENT DATE: 20121231
